FAERS Safety Report 4821970-3 (Version None)
Quarter: 2005Q4

REPORT INFORMATION
  Report Type: 
  Country: None (occurrence: None)
  Receive Date: 20051103
  Receipt Date: 20051017
  Transmission Date: 20060501
  Serious: Yes (Other)
  Sender: FDA-Public Use
  Company Number: 2005148806

PATIENT
  Age: 44 Year
  Sex: Female

DRUGS (2)
  1. GENOTROPIN [Suspect]
     Indication: GROWTH HORMONE DEFICIENCY
     Dates: end: 20020516
  2. DDAVP [Concomitant]

REACTIONS (3)
  - BODY MASS INDEX INCREASED [None]
  - HYPERTENSION [None]
  - INSULIN-LIKE GROWTH FACTOR INCREASED [None]
